FAERS Safety Report 9609351 (Version 3)
Quarter: 2013Q4

REPORT INFORMATION
  Report Type: Report from Study
  Country: CA (occurrence: CA)
  Receive Date: 20131009
  Receipt Date: 20131022
  Transmission Date: 20140711
  Serious: Yes (Hospitalization)
  Sender: FDA-Public Use
  Company Number: CA-ROCHE-1282300

PATIENT
  Age: 45 Year
  Sex: Female

DRUGS (8)
  1. PERTUZUMAB [Suspect]
     Indication: BREAST CANCER METASTATIC
     Dosage: LOADING DOSE AS PER PROTOCOL.
     Route: 042
     Dates: start: 20130826, end: 20130826
  2. PERTUZUMAB [Suspect]
     Dosage: MAINTENANCE DOSE AS PER PROTOCOL. MOST RECENT DOSE PRIOR TO SAE: 16/SEP/2013.
     Route: 042
     Dates: start: 20130916
  3. TRASTUZUMAB [Suspect]
     Indication: BREAST CANCER METASTATIC
     Dosage: LOADING DOSE AS PER PROTOCOL.
     Route: 042
     Dates: start: 20130827, end: 20130827
  4. TRASTUZUMAB [Suspect]
     Dosage: MAINTENANCE DOSE AS PER PROTOCOL. MOST RECENT DOSE PRIOR TO SAE: 16/SEP/2013.
     Route: 042
     Dates: start: 20130916
  5. DOCETAXEL [Suspect]
     Indication: BREAST CANCER METASTATIC
     Dosage: DATE OF LAST DOSE PRIOR TO SAE: 16/SEP/2013
     Route: 042
     Dates: start: 20130827
  6. DOSTINEX [Concomitant]
     Route: 065
     Dates: start: 2003
  7. DECADRON [Concomitant]
     Dosage: ADMINISTERED PRE AND POST CHEMOTHERAPY
     Route: 065
     Dates: start: 20130826, end: 20130828
  8. NEUPOGEN [Concomitant]
     Route: 065
     Dates: start: 20130904

REACTIONS (1)
  - Clostridium difficile infection [Recovered/Resolved]
